FAERS Safety Report 4436973-0 (Version None)
Quarter: 2004Q3

REPORT INFORMATION
  Report Type: 
  Country: None (occurrence: None)
  Receive Date: 20040830
  Receipt Date: 20031219
  Transmission Date: 20050211
  Serious: No
  Sender: FDA-Public Use
  Company Number: US-GLAXOSMITHKLINE-A0443795A

PATIENT
  Age: 66 Year
  Sex: Female

DRUGS (6)
  1. BECONASE [Suspect]
     Indication: ILL-DEFINED DISORDER
     Route: 045
  2. LESCOL [Concomitant]
  3. CLIMARA [Concomitant]
  4. ZITHROMAX [Concomitant]
  5. TEQUIN [Concomitant]
  6. PROMETRIUM [Concomitant]

REACTIONS (4)
  - EPISTAXIS [None]
  - NASAL DISCOMFORT [None]
  - NASAL DRYNESS [None]
  - PHARMACEUTICAL PRODUCT COMPLAINT [None]
